FAERS Safety Report 25735881 (Version 2)
Quarter: 2025Q3

REPORT INFORMATION
  Report Type: Report from Study
  Country: US (occurrence: US)
  Receive Date: 20250828
  Receipt Date: 20250916
  Transmission Date: 20251020
  Serious: Yes (Hospitalization)
  Sender: ABBVIE
  Company Number: US-ABBVIE-6434842

PATIENT
  Age: 21 Year
  Sex: Male

DRUGS (1)
  1. RINVOQ [Suspect]
     Active Substance: UPADACITINIB
     Indication: Crohn^s disease
     Dosage: FORM STRENGTH: 15 MILLIGRAM
     Route: 048
     Dates: start: 202506, end: 20250707

REACTIONS (6)
  - Pneumothorax [Recovered/Resolved]
  - Arthralgia [Unknown]
  - Painful respiration [Unknown]
  - Malaise [Not Recovered/Not Resolved]
  - Electrocardiogram abnormal [Unknown]
  - Cough [Unknown]

NARRATIVE: CASE EVENT DATE: 20250101
